FAERS Safety Report 5494108-X (Version None)
Quarter: 2007Q4

REPORT INFORMATION
  Report Type: 
  Country: None (occurrence: None)
  Receive Date: 20071022
  Receipt Date: 20071009
  Transmission Date: 20080405
  Serious: Yes (Hospitalization)
  Sender: FDA-Public Use
  Company Number: VNL_00798_2007

PATIENT
  Sex: Male
  Weight: 95.2554 kg

DRUGS (15)
  1. APOKYN [Suspect]
     Indication: PARKINSON'S DISEASE
     Dosage: DF TWO OR THREE TIMES DAILY SUBCUTANEOUS
     Route: 058
     Dates: start: 20070925
  2. SINEMET CR [Concomitant]
  3. RASAGILINE [Concomitant]
  4. COMTAN [Concomitant]
  5. REQUIP [Concomitant]
  6. GLUCOPHAGE [Concomitant]
  7. ACTOS /01450201/ [Concomitant]
  8. VYTORIN [Concomitant]
  9. ALTACE [Concomitant]
  10. HYDROCHLOROTHIAZIDE [Concomitant]
  11. NOVOLIN /00030501/ [Concomitant]
  12. NOVOLOG [Concomitant]
  13. POLY-IRON /01214501/ [Concomitant]
  14. TRIMETHOBENZAMIDE [Concomitant]
  15. ASPIRIN [Concomitant]

REACTIONS (6)
  - ABASIA [None]
  - BLOOD GLUCOSE FLUCTUATION [None]
  - CONDITION AGGRAVATED [None]
  - DYSSTASIA [None]
  - FALL [None]
  - SCIATICA [None]
